FAERS Safety Report 6180248-9 (Version None)
Quarter: 2009Q2

REPORT INFORMATION
  Report Type: 
  Country: None (occurrence: None)
  Receive Date: 20090504
  Receipt Date: 20090420
  Transmission Date: 20091009
  Serious: Yes (Hospitalization)
  Sender: FDA-Public Use
  Company Number: 234364K09USA

PATIENT
  Age: 52 Year
  Sex: Female

DRUGS (5)
  1. REBIF [Suspect]
     Indication: MULTIPLE SCLEROSIS
     Dosage: 44 MCG, 3 IN 1, SUBCUTANEOUS
     Route: 058
     Dates: start: 20070622
  2. LEVOTHYROXINE SODIUM [Concomitant]
  3. IBUPROFEN [Concomitant]
  4. PRILOSEC [Concomitant]
  5. ACYCLOVIR [Concomitant]

REACTIONS (8)
  - BLOOD PRESSURE INCREASED [None]
  - CONDITION AGGRAVATED [None]
  - HEART RATE INCREASED [None]
  - HYPOTHYROIDISM [None]
  - MALAISE [None]
  - MIGRAINE [None]
  - MUSCULOSKELETAL STIFFNESS [None]
  - MYALGIA [None]
